FAERS Safety Report 17407461 (Version 2)
Quarter: 2020Q4

REPORT INFORMATION
  Report Type: Report from Study
  Country: US (occurrence: US)
  Receive Date: 20200212
  Receipt Date: 20201116
  Transmission Date: 20210113
  Serious: Yes (Hospitalization, Other)
  Sender: FDA-Public Use
  Company Number: US-KYOWAKIRIN-2020BKK001847

PATIENT

DRUGS (2)
  1. NOURIANZ [Suspect]
     Active Substance: ISTRADEFYLLINE
     Dosage: QUARTER OF A TABLET OF 20 MG
     Route: 065
     Dates: start: 2020
  2. NOURIANZ [Suspect]
     Active Substance: ISTRADEFYLLINE
     Indication: PRODUCT USED FOR UNKNOWN INDICATION
     Dosage: HALF OF 20 MG
     Route: 065

REACTIONS (9)
  - Back pain [Unknown]
  - Screaming [Unknown]
  - Dizziness [Unknown]
  - Fall [Unknown]
  - Myocardial infarction [Unknown]
  - Insomnia [Recovered/Resolved]
  - Wrong technique in product usage process [Not Recovered/Not Resolved]
  - Parkinson^s disease [Unknown]
  - Cerebrovascular accident [Unknown]

NARRATIVE: CASE EVENT DATE: 202006
